FAERS Safety Report 5379997-1 (Version None)
Quarter: 2007Q3

REPORT INFORMATION
  Report Type: 
  Country: None (occurrence: None)
  Receive Date: 20070703
  Receipt Date: 20070618
  Transmission Date: 20080115
  Serious: Yes (Death)
  Sender: FDA-Public Use
  Company Number: 2007001115

PATIENT
  Age: 99 Year
  Sex: Male

DRUGS (2)
  1. TARCEVA [Suspect]
     Indication: LUNG ADENOCARCINOMA METASTATIC
     Dosage: 150 MG (QD), ORAL
     Route: 048
     Dates: start: 20060824, end: 20061015
  2. LOW MOLECULAR HEPARIN [Concomitant]

REACTIONS (5)
  - CEREBRAL DISORDER [None]
  - CEREBRAL HAEMORRHAGE [None]
  - COAGULOPATHY [None]
  - NEOPLASM PROGRESSION [None]
  - THROMBOCYTOPENIA [None]
